FAERS Safety Report 5285874-7 (Version None)
Quarter: 2007Q1

REPORT INFORMATION
  Report Type: 
  Country: None (occurrence: None)
  Receive Date: 20070104
  Receipt Date: 20061006
  Transmission Date: 20070707
  Serious: Yes (Other)
  Sender: FDA-Public Use
  Company Number: BDI-008722

PATIENT
  Sex: Female

DRUGS (2)
  1. MULTIHANCE [Suspect]
     Indication: HYPOAESTHESIA
     Dosage: 18 ML ONCE IV
     Route: 042
     Dates: start: 20061003, end: 20061003
  2. MULTIHANCE [Suspect]
     Indication: NUCLEAR MAGNETIC RESONANCE IMAGING BRAIN
     Dosage: 18 ML ONCE IV
     Route: 042
     Dates: start: 20061003, end: 20061003

REACTIONS (1)
  - HYPERSENSITIVITY [None]
